FAERS Safety Report 10090359 (Version 2)
Quarter: 2014Q2

REPORT INFORMATION
  Report Type: Spontaneous
  Country: US (occurrence: US)
  Receive Date: 20140421
  Receipt Date: 20140619
  Transmission Date: 20141212
  Serious: No
  Sender: FDA-Public Use
  Company Number: US-PFIZER INC-2014109593

PATIENT
  Age: 77 Year
  Sex: Female

DRUGS (3)
  1. XELJANZ [Suspect]
     Indication: RHEUMATOID ARTHRITIS
     Dosage: 5 MG, 2X/DAY (STRENGTH 5MG)
     Route: 048
     Dates: start: 20140217
  2. MAGNESIUM OXIDE [Concomitant]
     Dosage: 250 MG, 2X/DAY
     Route: 048
  3. DILTIAZEM ER [Concomitant]
     Dosage: 120 MG, 2X/DAY
     Route: 048

REACTIONS (3)
  - Contusion [Unknown]
  - Neck pain [Unknown]
  - Arthralgia [Unknown]
